FAERS Safety Report 7340794-9 (Version None)
Quarter: 2011Q1

REPORT INFORMATION
  Report Type: 
  Country: None (occurrence: None)
  Receive Date: 20110309
  Receipt Date: 20110304
  Transmission Date: 20110831
  Serious: Yes (Other)
  Sender: FDA-Public Use
  Company Number: US-PFIZER INC-2011048282

PATIENT
  Sex: Female
  Weight: 48 kg

DRUGS (8)
  1. TYLENOL [Concomitant]
     Dosage: UNK
  2. VALIUM [Concomitant]
     Dosage: UNK
     Route: 048
  3. ADVIL [Concomitant]
     Dosage: UNK
     Route: 048
  4. PERCOCET [Concomitant]
     Dosage: UNK
     Route: 048
  5. PREMARIN [Suspect]
     Indication: VULVOVAGINAL DRYNESS
     Dosage: UNK
     Dates: start: 20100101
  6. VAGIFEM [Suspect]
     Indication: VAGINAL DISORDER
     Dosage: UNK
     Dates: start: 20010101, end: 20100101
  7. PRILOSEC [Concomitant]
     Dosage: UNK
  8. PROMETRIUM [Suspect]
     Dosage: UNK
     Dates: start: 20110201, end: 20110201

REACTIONS (7)
  - DRUG HYPERSENSITIVITY [None]
  - DIZZINESS [None]
  - CYSTITIS [None]
  - PRURITUS [None]
  - MALAISE [None]
  - ACTIVITIES OF DAILY LIVING IMPAIRED [None]
  - DYSURIA [None]
